FAERS Safety Report 23810597 (Version 1)
Quarter: 2024Q2

REPORT INFORMATION
  Report Type: Spontaneous
  Country: US (occurrence: US)
  Receive Date: 20240502
  Receipt Date: 20240502
  Transmission Date: 20240716
  Serious: No
  Sender: FDA-Public Use
  Company Number: US-VER-202400068

PATIENT
  Sex: Male

DRUGS (1)
  1. TLANDO [Suspect]
     Active Substance: TESTOSTERONE UNDECANOATE
     Indication: Type 2 diabetes mellitus
     Route: 065

REACTIONS (2)
  - Off label use [Unknown]
  - Insurance issue [Unknown]
